FAERS Safety Report 8854169 (Version 2)
Quarter: 2012Q4

REPORT INFORMATION
  Report Type: 
  Country: FR (occurrence: FR)
  Receive Date: 20121022
  Receipt Date: 20121101
  Transmission Date: 20130627
  Serious: Yes (Death, Other)
  Sender: FDA-Public Use
  Company Number: FR-BRISTOL-MYERS SQUIBB COMPANY-17033994

PATIENT
  Age: 87 Year
  Sex: Female

DRUGS (14)
  1. COUMADIN TABS 2 MG [Suspect]
     Dosage: Scored tabs,2.5mg tabs or 3 tabs
     Route: 048
     Dates: start: 201002
  2. TEGRETOL [Concomitant]
     Dosage: ER film-coated scored tablet
     Route: 048
  3. CARBAMAZEPINE [Concomitant]
     Dosage: film-coated scored tablet
     Route: 048
     Dates: start: 20101222, end: 20120621
  4. NEURONTIN [Concomitant]
     Dosage: capsule,400mg
     Route: 048
     Dates: start: 20100705
  5. NEBILOX [Concomitant]
     Dosage: Nebilox 5mg tab quadriscored
     Route: 048
     Dates: start: 201103
  6. HEMIGOXINE NATIVELLE [Concomitant]
     Dosage: tablet
     Route: 048
     Dates: start: 201103
  7. ALDALIX [Concomitant]
     Dosage: 1 DF: 1 capsule,50 mg/20 mg
     Route: 048
     Dates: start: 200809
  8. TAHOR [Concomitant]
     Dosage: in the evng
     Route: 048
     Dates: start: 200406
  9. PRITOR [Concomitant]
     Dosage: tab
     Route: 048
     Dates: start: 200303
  10. LEVOTHYROX [Concomitant]
     Dosage: once every other morning,125micrograms
     Route: 048
     Dates: start: 200301
  11. CALCIDOSE [Concomitant]
     Dosage: 1DF: 2 sachets,one in morning and one in evening
     Route: 048
     Dates: start: 200909
  12. VITAMIN D [Concomitant]
     Dosage: 1 DF: 2 sachet dose
     Route: 048
     Dates: start: 200909, end: 200909
  13. PARIET [Concomitant]
     Dosage: gastro resistant tablet
     Route: 048
     Dates: start: 200704
  14. DAFALGAN TABS 1 GM [Concomitant]
     Dosage: film coated tablet
     Route: 048
     Dates: start: 200501

REACTIONS (3)
  - Haemothorax [Fatal]
  - Rib fracture [Fatal]
  - Fall [Fatal]
